FAERS Safety Report 12166740 (Version 2)
Quarter: 2016Q1

REPORT INFORMATION
  Report Type: Spontaneous
  Country: JP (occurrence: JP)
  Receive Date: 20160310
  Receipt Date: 20160311
  Transmission Date: 20160526
  Serious: Yes (Death, Other)
  Sender: FDA-Public Use
  Company Number: JP-ROCHE-1714985

PATIENT
  Age: 48 Year
  Sex: Female
  Weight: 58 kg

DRUGS (9)
  1. PACLITAXEL. [Concomitant]
     Active Substance: PACLITAXEL
     Indication: BREAST CANCER
     Route: 041
     Dates: start: 20150729, end: 20151118
  2. NEUZYM [Concomitant]
     Active Substance: LYSOZYME HYDROCHLORIDE
     Route: 048
  3. AVASTIN [Suspect]
     Active Substance: BEVACIZUMAB
     Indication: BREAST CANCER
     Dosage: DATE OF MOST RECENT DOSE: 18/NOV/2015
     Route: 041
     Dates: start: 20150729, end: 20151118
  4. BISOLVON [Concomitant]
     Active Substance: BROMHEXINE HYDROCHLORIDE
     Route: 048
  5. MUCOSOLVAN [Concomitant]
     Active Substance: AMBROXOL HYDROCHLORIDE
     Route: 048
     Dates: start: 20150916
  6. THEO-DUR [Concomitant]
     Active Substance: THEOPHYLLINE ANHYDROUS
     Route: 048
  7. ALLELOCK [Concomitant]
     Active Substance: OLOPATADINE HYDROCHLORIDE
     Route: 048
  8. CARBOCISTEINE [Concomitant]
     Active Substance: CARBOCYSTEINE
     Route: 048
     Dates: start: 20150916
  9. ORADOL (JAPAN) [Concomitant]
     Dosage: PROPERLY
     Route: 049

REACTIONS (4)
  - Respiratory failure [Fatal]
  - Oesophagobronchial fistula [Fatal]
  - Pneumonia [Unknown]
  - Pneumomediastinum [Unknown]

NARRATIVE: CASE EVENT DATE: 201512
